FAERS Safety Report 15488820 (Version 4)
Quarter: 2019Q3

REPORT INFORMATION
  Report Type: Spontaneous
  Country: US (occurrence: US)
  Receive Date: 20181011
  Receipt Date: 20190813
  Transmission Date: 20191004
  Serious: No
  Sender: FDA-Public Use
  Company Number: US-PFIZER INC-2018401605

PATIENT
  Age: 48 Year
  Sex: Female

DRUGS (9)
  1. METHOTREXATE SODIUM. [Suspect]
     Active Substance: METHOTREXATE SODIUM
     Dosage: UNK
  2. MYCOPHENOLATE MOFETIL. [Suspect]
     Active Substance: MYCOPHENOLATE MOFETIL
     Dosage: UNK
  3. TOPAMAX [Suspect]
     Active Substance: TOPIRAMATE
     Dosage: UNK
  4. ASPRIN [Suspect]
     Active Substance: ASPIRIN
     Dosage: UNK
  5. ESTROGENS CONJUGATED [Suspect]
     Active Substance: ESTROGENS, CONJUGATED
     Dosage: UNK
  6. DILAUDID [Suspect]
     Active Substance: HYDROMORPHONE HYDROCHLORIDE
     Dosage: UNK
  7. INFLUENZA [Suspect]
     Active Substance: INFLUENZA VIRUS VACCINE
     Dosage: UNK
  8. MORPHINE SULFATE. [Suspect]
     Active Substance: MORPHINE SULFATE
     Dosage: UNK
  9. NORTRIPTYLINE [Suspect]
     Active Substance: NORTRIPTYLINE
     Dosage: UNK

REACTIONS (1)
  - Drug hypersensitivity [Unknown]
